FAERS Safety Report 13865061 (Version 2)
Quarter: 2017Q4

REPORT INFORMATION
  Report Type: Report from Study
  Country: DE (occurrence: DE)
  Receive Date: 20170814
  Receipt Date: 20171009
  Transmission Date: 20180320
  Serious: Yes (Other)
  Sender: FDA-Public Use
  Company Number: DE-REGENERON PHARMACEUTICALS, INC.-2017-20034

PATIENT

DRUGS (1)
  1. EYLEA [Suspect]
     Active Substance: AFLIBERCEPT
     Indication: RETINAL VASCULAR OCCLUSION
     Dosage: 0.05 ML, FREQUENCY AND TOTAL NUMBER OF INJECTIONS WERE NOT REPORTED
     Route: 031

REACTIONS (1)
  - Vitreous disorder [Unknown]
